FAERS Safety Report 9026661 (Version 1)
Quarter: 2013Q1

REPORT INFORMATION
  Report Type: Spontaneous
  Country: US (occurrence: None)
  Receive Date: 20130114
  Receipt Date: 20130114
  Transmission Date: 20140127
  Serious: Yes (Other)
  Sender: FDA-Public Use
  Company Number: None

PATIENT
  Age: 77 Year
  Sex: Female
  Weight: 48.99 kg

DRUGS (1)
  1. FORTEO 20MCG LILLY [Suspect]
     Indication: BONE DISORDER
     Dosage: 20 MCG EVERY NT @ BEDTIME SUBCUT PEN INJECTION
     Route: 058
     Dates: start: 201203, end: 20121205

REACTIONS (3)
  - Middle insomnia [None]
  - Hyperhidrosis [None]
  - Weight decreased [None]
